FAERS Safety Report 7770009-9 (Version None)
Quarter: 2011Q3

REPORT INFORMATION
  Report Type: 
  Country: None (occurrence: None)
  Receive Date: 20110922
  Receipt Date: 20100521
  Transmission Date: 20111222
  Serious: No
  Sender: FDA-Public Use
  Company Number: US-ASTRAZENECA-2010SE47461

PATIENT
  Sex: Female

DRUGS (7)
  1. LYRICA [Concomitant]
     Dates: start: 20071105
  2. ACTOS [Concomitant]
     Route: 048
     Dates: start: 20050405
  3. NEXIUM [Concomitant]
     Route: 048
     Dates: start: 20050405
  4. SEROQUEL [Suspect]
     Route: 048
     Dates: start: 20050405
  5. TRAZODONE HYDROCHLORIDE [Concomitant]
     Route: 048
     Dates: start: 20050405
  6. FUROSEMIDE [Concomitant]
     Route: 048
     Dates: start: 20050405
  7. ABILIFY [Concomitant]
     Dates: start: 20071123

REACTIONS (1)
  - ILL-DEFINED DISORDER [None]
